FAERS Safety Report 5754108-9 (Version None)
Quarter: 2008Q2

REPORT INFORMATION
  Report Type: 
  Country: None (occurrence: None)
  Receive Date: 20080530
  Receipt Date: 20080521
  Transmission Date: 20081010
  Serious: Yes (Other)
  Sender: FDA-Public Use
  Company Number: BR-ROCHE-565952

PATIENT
  Sex: Female
  Weight: 89 kg

DRUGS (7)
  1. XENICAL [Suspect]
     Indication: WEIGHT CONTROL
     Route: 048
     Dates: end: 20071101
  2. XENICAL [Suspect]
     Route: 048
     Dates: start: 20080430
  3. SYMBICORT [Concomitant]
     Indication: ASTHMA
     Dosage: OTHER INDICATION:  BRONCHITIS
  4. SYMBICORT [Concomitant]
     Dosage: OTHER INDICATION:  BRONCHITIS
  5. SINGULAIR [Concomitant]
     Indication: ASTHMA
     Dosage: OTHER INDICATION: BRONCHITIS
  6. FORADIL [Concomitant]
     Indication: ASTHMA
     Dosage: OTHER INDICATION: BRONCHITIS
  7. AMLODIPINE [Concomitant]
     Indication: HYPERTENSION

REACTIONS (5)
  - ABDOMINAL HERNIA [None]
  - ABNORMAL FAECES [None]
  - DIARRHOEA [None]
  - ROAD TRAFFIC ACCIDENT [None]
  - STEATORRHOEA [None]
